FAERS Safety Report 19220827 (Version 1)
Quarter: 2021Q2

REPORT INFORMATION
  Report Type: Not Available
  Country: None (occurrence: None)
  Receive Date: 20210505
  Receipt Date: 20210505
  Transmission Date: 20210717
  Serious: No
  Sender: FDA-Public Use
  Company Number: US-AKORN-165430

PATIENT
  Age: 74 Year
  Sex: Female

DRUGS (1)
  1. LACTULOSE SOLUTION [Suspect]
     Active Substance: LACTULOSE

REACTIONS (1)
  - Drug effect less than expected [Not Recovered/Not Resolved]

NARRATIVE: CASE EVENT DATE: 20210404
